FAERS Safety Report 18322384 (Version 1)
Quarter: 2020Q3

REPORT INFORMATION
  Report Type: Spontaneous
  Country: US (occurrence: US)
  Receive Date: 20200928
  Receipt Date: 20200928
  Transmission Date: 20201103
  Serious: Yes (Hospitalization)
  Sender: FDA-Public Use
  Company Number: None

PATIENT
  Age: 66 Year
  Sex: Female
  Weight: 64.5 kg

DRUGS (4)
  1. DOXORUBICIN HYDROCHLORIDE. [Suspect]
     Active Substance: DOXORUBICIN HYDROCHLORIDE
     Dates: end: 20200701
  2. TAXOL [Suspect]
     Active Substance: PACLITAXEL
     Dates: end: 20200827
  3. CYCLOPHOSPHAMIDE. [Suspect]
     Active Substance: CYCLOPHOSPHAMIDE
     Dates: end: 20200701
  4. CARBOPLATIN. [Suspect]
     Active Substance: CARBOPLATIN
     Dates: end: 20200827

REACTIONS (8)
  - Neuropathy peripheral [None]
  - Chest discomfort [None]
  - Troponin increased [None]
  - Angina pectoris [None]
  - Pericarditis [None]
  - Dyspnoea [None]
  - Rash [None]
  - Blood pressure systolic increased [None]

NARRATIVE: CASE EVENT DATE: 20200909
